FAERS Safety Report 12075108 (Version 2)
Quarter: 2016Q2

REPORT INFORMATION
  Report Type: Report from Study
  Country: US (occurrence: US)
  Receive Date: 20160212
  Receipt Date: 20160404
  Transmission Date: 20160815
  Serious: Yes (Hospitalization)
  Sender: FDA-Public Use
  Company Number: US-BIOGEN-2016BI00188173

PATIENT
  Age: 44 Year
  Sex: Female

DRUGS (1)
  1. TYSABRI [Suspect]
     Active Substance: NATALIZUMAB
     Indication: MULTIPLE SCLEROSIS
     Route: 042
     Dates: start: 20151028, end: 20151221

REACTIONS (13)
  - Urinary retention [Unknown]
  - Heart rate increased [Unknown]
  - Speech disorder [Unknown]
  - Vomiting [Unknown]
  - General symptom [Unknown]
  - Diarrhoea [Unknown]
  - Disorientation [Unknown]
  - Constipation [Unknown]
  - Hydrocephalus [Unknown]
  - Infection [Unknown]
  - Multiple sclerosis [Not Recovered/Not Resolved]
  - Abdominal discomfort [Unknown]
  - Pyrexia [Unknown]

NARRATIVE: CASE EVENT DATE: 20160124
